FAERS Safety Report 10231315 (Version 1)
Quarter: 2014Q2

REPORT INFORMATION
  Report Type: Report from Study
  Country: IE (occurrence: IE)
  Receive Date: 20140611
  Receipt Date: 20140611
  Transmission Date: 20141212
  Serious: Yes (Death)
  Sender: FDA-Public Use
  Company Number: IE-GLAXOSMITHKLINE-B1002650A

PATIENT
  Sex: Female

DRUGS (8)
  1. TYVERB [Suspect]
     Indication: BREAST CANCER METASTATIC
     Dosage: 750MG PER DAY
     Route: 048
     Dates: start: 20140410
  2. AFINITOR [Concomitant]
  3. DIFLUCAN [Concomitant]
  4. MOTILIUM [Concomitant]
  5. VALTREX [Concomitant]
  6. EXEMESTANE [Concomitant]
  7. ZOTON [Concomitant]
  8. LOMOTIL [Concomitant]

REACTIONS (1)
  - Death [Fatal]
